FAERS Safety Report 13794650 (Version 5)
Quarter: 2018Q1

REPORT INFORMATION
  Report Type: Spontaneous
  Country: US (occurrence: US)
  Receive Date: 20170726
  Receipt Date: 20180215
  Transmission Date: 20180508
  Serious: Yes (Hospitalization, Other)
  Sender: FDA-Public Use
  Company Number: US-PFIZER INC-2017322115

PATIENT
  Age: 69 Year
  Sex: Female
  Weight: 71.67 kg

DRUGS (3)
  1. XELJANZ [Suspect]
     Active Substance: TOFACITINIB CITRATE
     Indication: RHEUMATOID ARTHRITIS
     Dosage: 5 MG, TWICE A DAY
     Route: 048
     Dates: start: 201611, end: 20170623
  2. AMLODIPINE [Concomitant]
     Active Substance: AMLODIPINE BESYLATE
     Indication: HYPERTENSION
     Dosage: 5 MG, ONCE A DAY
     Route: 048
  3. METOPROLOL. [Concomitant]
     Active Substance: METOPROLOL
     Indication: HYPERTENSION
     Dosage: 25 MG, ONCE A DAY (AT NIGHT)
     Route: 048

REACTIONS (2)
  - Infection [Recovering/Resolving]
  - Staphylococcal infection [Recovering/Resolving]

NARRATIVE: CASE EVENT DATE: 20170623
